FAERS Safety Report 9276853 (Version 2)
Quarter: 2013Q2

REPORT INFORMATION
  Report Type: Spontaneous
  Country: US (occurrence: US)
  Receive Date: 20130507
  Receipt Date: 20130509
  Transmission Date: 20140414
  Serious: Yes (Death, Hospitalization, Other)
  Sender: FDA-Public Use
  Company Number: US-BAXTER-2013BAX016209

PATIENT
  Age: 53 Year
  Sex: Male
  Weight: 113.64 kg

DRUGS (2)
  1. 0.9% SODIUM CHLORIDE INJECTION [Suspect]
     Indication: RENAL FAILURE CHRONIC
     Route: 050
     Dates: start: 201104, end: 201212
  2. 0.9% SODIUM CHLORIDE INJECTION [Suspect]
     Route: 050
     Dates: start: 201104, end: 201212

REACTIONS (4)
  - Diabetic complication [Fatal]
  - Endocarditis [Unknown]
  - Thrombotic stroke [Not Recovered/Not Resolved]
  - General physical health deterioration [Unknown]
